FAERS Safety Report 13267718 (Version 1)
Quarter: 2017Q1

REPORT INFORMATION
  Report Type: Spontaneous
  Country: US (occurrence: US)
  Receive Date: 20170223
  Receipt Date: 20170223
  Transmission Date: 20170428
  Serious: Yes (Other)
  Sender: FDA-Public Use
  Company Number: None

PATIENT
  Age: 36 Year
  Sex: Female
  Weight: 69.39 kg

DRUGS (3)
  1. B-COMPLEX VITAMIN [Concomitant]
  2. PHENDIMETRAZINE [Suspect]
     Active Substance: PHENDIMETRAZINE
     Indication: WEIGHT CONTROL
     Route: 048
     Dates: start: 20170216, end: 20170220
  3. MULTIVITAMIN [Concomitant]
     Active Substance: VITAMINS

REACTIONS (1)
  - Dyspnoea [None]

NARRATIVE: CASE EVENT DATE: 20170220
